FAERS Safety Report 18140701 (Version 1)
Quarter: 2020Q3

REPORT INFORMATION
  Report Type: Spontaneous
  Country: CN (occurrence: CN)
  Receive Date: 20200812
  Receipt Date: 20200812
  Transmission Date: 20201103
  Serious: Yes (Other)
  Sender: FDA-Public Use
  Company Number: CN-PFIZER INC-2020304332

PATIENT
  Age: 99 Year
  Sex: Male
  Weight: 55 kg

DRUGS (1)
  1. LYRICA [Suspect]
     Active Substance: PREGABALIN
     Indication: SYMPTOMATIC TREATMENT
     Dosage: 150 MG, 2X/DAY
     Route: 048
     Dates: start: 20200717, end: 20200718

REACTIONS (3)
  - Somnolence [Recovering/Resolving]
  - Confusional state [Recovering/Resolving]
  - Altered state of consciousness [Recovering/Resolving]

NARRATIVE: CASE EVENT DATE: 20200717
